FAERS Safety Report 8505760-6 (Version None)
Quarter: 2012Q3

REPORT INFORMATION
  Report Type: 
  Country: None (occurrence: None)
  Receive Date: 20120712
  Receipt Date: 20120703
  Transmission Date: 20120928
  Serious: Yes (Hospitalization)
  Sender: FDA-Public Use
  Company Number: US-BAYER-2012-031657

PATIENT
  Age: 20 Year
  Sex: Female
  Weight: 56.689 kg

DRUGS (5)
  1. LIPITOR [Concomitant]
     Indication: BLOOD CHOLESTEROL INCREASED
     Dosage: UNK
     Dates: start: 19940101
  2. ADDERALL 5 [Concomitant]
     Indication: ATTENTION DEFICIT/HYPERACTIVITY DISORDER
     Dosage: UNK
     Dates: start: 20020101, end: 20080101
  3. YASMIN [Suspect]
     Indication: ACNE
     Dosage: UNK
     Dates: start: 20060801, end: 20070601
  4. LEVOTHYROXINE SODIUM [Concomitant]
     Indication: THYROID DISORDER
     Dosage: UNK
     Dates: start: 19940101
  5. ZESTORETIC [Concomitant]
     Indication: HYPERTENSION
     Dosage: UNK
     Dates: start: 20010101

REACTIONS (3)
  - THROMBOSIS [None]
  - PAIN [None]
  - SUBCLAVIAN VEIN THROMBOSIS [None]
